FAERS Safety Report 16196851 (Version 1)
Quarter: 2019Q2

REPORT INFORMATION
  Report Type: Spontaneous
  Country: PL (occurrence: PL)
  Receive Date: 20190415
  Receipt Date: 20190415
  Transmission Date: 20190711
  Serious: Yes (Death)
  Sender: FDA-Public Use
  Company Number: PL-PFIZER INC-2019162168

PATIENT
  Age: 65 Year
  Weight: 100 kg

DRUGS (31)
  1. LACTULOSE. [Concomitant]
     Active Substance: LACTULOSE
  2. TRIFAS [TORASEMIDE] [Concomitant]
  3. METRONIDAZOLE [METRONIDAZOLE SODIUM] [Concomitant]
  4. HEPA MERZ [Concomitant]
  5. PLAVIX [Concomitant]
     Active Substance: CLOPIDOGREL BISULFATE
     Dates: start: 20180810
  6. XIFAXAN [Concomitant]
     Active Substance: RIFAXIMIN
  7. LEVEMIR [Concomitant]
     Active Substance: INSULIN DETEMIR
  8. EPLENOCARD [Concomitant]
     Dates: start: 20180810
  9. MORPHINE [Concomitant]
     Active Substance: MORPHINE
     Dates: start: 20180810
  10. RESONIUM [Concomitant]
     Active Substance: SODIUM POLYSTYRENE SULFONATE
  11. TRAMAL [Concomitant]
     Active Substance: TRAMADOL
  12. PROURSAN [Concomitant]
     Active Substance: URSODIOL
  13. METOCLOPRAMID [METOCLOPRAMIDE HYDROCHLORIDE] [Concomitant]
     Dates: start: 20180810
  14. FENTANYL. [Concomitant]
     Active Substance: FENTANYL
  15. GLIMEPIRID [Concomitant]
     Active Substance: GLIMEPIRIDE
  16. ATORVASTATIN [Concomitant]
     Active Substance: ATORVASTATIN
  17. PARACETAMOL [Concomitant]
     Active Substance: ACETAMINOPHEN
     Dates: start: 20180810
  18. DOPAMINE [Concomitant]
     Active Substance: DOPAMINE\DOPAMINE HYDROCHLORIDE
     Dates: start: 20180811
  19. TULIP [FLURBIPROFEN] [Concomitant]
     Dates: start: 20180810
  20. TORASEMID [Concomitant]
     Active Substance: TORSEMIDE
  21. CORDARONE [Suspect]
     Active Substance: AMIODARONE HYDROCHLORIDE
     Dosage: UNK
     Route: 065
     Dates: start: 20180810
  22. AUGMENTIN [Concomitant]
     Active Substance: AMOXICILLIN\CLAVULANATE POTASSIUM
  23. PROSTIGMINA [NEOSTIGMINE BROMIDE] [Concomitant]
  24. LEVONOR [LEVOFLOXACIN] [Concomitant]
     Dates: start: 20180811
  25. OCTAPLEX [Concomitant]
     Active Substance: COAGULATION FACTOR IX HUMAN\COAGULATION FACTOR VII HUMAN\COAGULATION FACTOR X HUMAN\PROTEIN C\PROTEIN S HUMAN\PROTHROMBIN
  26. FUROSEMIDE [FUROSEMIDE SODIUM] [Concomitant]
     Dates: start: 20180810
  27. ESSENTIALE FORTE N [Concomitant]
  28. ACARD [Concomitant]
     Active Substance: ASPIRIN
     Dates: start: 20180810
  29. BETALOC ZOK [Concomitant]
     Active Substance: METOPROLOL SUCCINATE
     Dates: start: 20180810
  30. METFORMIN [Concomitant]
     Active Substance: METFORMIN HYDROCHLORIDE
  31. BIOFUROKSYM [Concomitant]
     Active Substance: CEFUROXIME SODIUM

REACTIONS (16)
  - Skin discolouration [Fatal]
  - Liver injury [Fatal]
  - Abdominal pain [Fatal]
  - Acute kidney injury [Fatal]
  - Oliguria [Fatal]
  - Confusional state [Fatal]
  - Hypovolaemic shock [Fatal]
  - Chest pain [Fatal]
  - Respiratory failure [Fatal]
  - Multiple organ dysfunction syndrome [Fatal]
  - Cardiac failure [Fatal]
  - Sudden cardiac death [Fatal]
  - Cardiac arrest [Fatal]
  - Blood pressure decreased [Fatal]
  - Chest pain [Fatal]
  - Vomiting projectile [Fatal]

NARRATIVE: CASE EVENT DATE: 20180810
